FAERS Safety Report 5766615-3 (Version None)
Quarter: 2008Q2

REPORT INFORMATION
  Report Type: 
  Country: None (occurrence: None)
  Receive Date: 20080609
  Receipt Date: 20080528
  Transmission Date: 20081010
  Serious: Yes (Disabling)
  Sender: FDA-Public Use
  Company Number: S08-USA-01938-01

PATIENT
  Age: 30 Year
  Sex: Male

DRUGS (5)
  1. LEXAPRO [Suspect]
     Indication: ANXIETY
     Dosage: 20 MG QD PO
     Route: 048
     Dates: start: 20040201, end: 20080201
  2. LEXAPRO [Suspect]
     Indication: DEPRESSION
     Dosage: 20 MG QD PO
     Route: 048
     Dates: start: 20040201, end: 20080201
  3. XANAX [Concomitant]
  4. ADDERALL 10 [Concomitant]
  5. IBUROFEN [Concomitant]

REACTIONS (5)
  - FEELING ABNORMAL [None]
  - HEMIPLEGIA [None]
  - OVERDOSE [None]
  - PAIN [None]
  - SUICIDE ATTEMPT [None]
